FAERS Safety Report 4916729-2 (Version None)
Quarter: 2006Q1

REPORT INFORMATION
  Report Type: 
  Country: None (occurrence: None)
  Receive Date: 20060214
  Receipt Date: 20060201
  Transmission Date: 20060701
  Serious: Yes (Hospitalization)
  Sender: FDA-Public Use
  Company Number: 2006009127

PATIENT
  Age: 46 Year
  Sex: Female

DRUGS (4)
  1. ZITHROMAX [Suspect]
     Indication: ILL-DEFINED DISORDER
     Dosage: 500 MG ORAL
     Route: 048
     Dates: start: 20051215, end: 20051217
  2. FLOMOX             (CEFCAPENE PIVOXIL HYDROCHLORIDE) [Concomitant]
  3. CARBENIN            (BETAMIPIRON,  PANIPENEM) [Concomitant]
  4. MINOMYCIN                (MINOCYCLONE HYDROCHLORIDE) [Concomitant]

REACTIONS (5)
  - EOSINOPHIL COUNT INCREASED [None]
  - EOSINOPHILIC PNEUMONIA [None]
  - MYELOID METAPLASIA [None]
  - PYREXIA [None]
  - WHITE BLOOD CELL COUNT INCREASED [None]
